FAERS Safety Report 24294603 (Version 6)
Quarter: 2024Q4

REPORT INFORMATION
  Report Type: Report from Study
  Country: US (occurrence: US)
  Receive Date: 20240906
  Receipt Date: 20241023
  Transmission Date: 20250114
  Serious: Yes (Life-Threatening, Hospitalization)
  Sender: PFIZER
  Company Number: US-PFIZER INC-PV202400116879

PATIENT
  Age: 21 Year
  Sex: Male

DRUGS (51)
  1. BUSULFAN [Suspect]
     Active Substance: BUSULFAN
     Indication: Myelosuppression
     Dosage: 54 MG, Q6H
     Route: 042
     Dates: start: 20240709, end: 20240710
  2. BUSULFAN [Suspect]
     Active Substance: BUSULFAN
     Dosage: 54 MG, Q6H
     Route: 042
     Dates: start: 20240710, end: 20240711
  3. BUSULFAN [Suspect]
     Active Substance: BUSULFAN
     Dosage: 54 MG, Q6H
     Route: 042
     Dates: start: 20240711, end: 20240712
  4. BUSULFAN [Suspect]
     Active Substance: BUSULFAN
     Dosage: 54 MG, Q6H
     Route: 042
     Dates: start: 20240712, end: 20240713
  5. RENIZGAMGLOGENE AUTOGEDTEMCEL [Suspect]
     Active Substance: RENIZGAMGLOGENE AUTOGEDTEMCEL
     Indication: Sickle cell disease
     Dosage: 19 MG, SINGLE
     Route: 042
     Dates: start: 20240716, end: 20240716
  6. RENIZGAMGLOGENE AUTOGEDTEMCEL [Suspect]
     Active Substance: RENIZGAMGLOGENE AUTOGEDTEMCEL
     Dosage: 18.8 MG, SINGLE
     Route: 042
     Dates: start: 20240716, end: 20240716
  7. RENIZGAMGLOGENE AUTOGEDTEMCEL [Suspect]
     Active Substance: RENIZGAMGLOGENE AUTOGEDTEMCEL
     Dosage: 18.7 MG, SINGLE
     Route: 042
     Dates: start: 20240716, end: 20240716
  8. PLERIXAFOR [Concomitant]
     Active Substance: PLERIXAFOR
     Indication: Leukapheresis
     Dosage: 20 MG
     Route: 058
     Dates: start: 20231114
  9. PLERIXAFOR [Concomitant]
     Active Substance: PLERIXAFOR
     Dosage: 20 MG
     Route: 058
     Dates: start: 20231115
  10. PLERIXAFOR [Concomitant]
     Active Substance: PLERIXAFOR
     Dosage: 20 MG
     Route: 058
     Dates: start: 20231116
  11. PLERIXAFOR [Concomitant]
     Active Substance: PLERIXAFOR
     Dosage: 20 MG
     Route: 058
     Dates: start: 20240115
  12. PLERIXAFOR [Concomitant]
     Active Substance: PLERIXAFOR
     Dosage: 20 MG
     Route: 058
     Dates: start: 20240116
  13. OXYCODONE HYDROCHLORIDE [Concomitant]
     Active Substance: OXYCODONE HYDROCHLORIDE
     Dosage: UNK
     Dates: start: 20180410
  14. IBUPROFEN SODIUM [Concomitant]
     Active Substance: IBUPROFEN SODIUM
     Dosage: UNK
     Dates: start: 20180410
  15. PSEUDOEPHEDRINE HYDROCHLORIDE [Concomitant]
     Active Substance: PSEUDOEPHEDRINE HYDROCHLORIDE
     Dosage: UNK
     Dates: start: 20200301
  16. ALBUTEROL SULFATE [Concomitant]
     Active Substance: ALBUTEROL SULFATE
     Dosage: UNK
     Dates: start: 20140701
  17. BUDESONIDE\FORMOTEROL [Concomitant]
     Active Substance: BUDESONIDE\FORMOTEROL
     Dosage: UNK
     Dates: start: 20140701
  18. ACETAMINOPHEN [Concomitant]
     Active Substance: ACETAMINOPHEN
     Dosage: UNK
     Dates: start: 20180410
  19. DOCUSATE SODIUM\SENNOSIDES A AND B [Concomitant]
     Active Substance: DOCUSATE SODIUM\SENNOSIDES A AND B
     Dosage: UNK
     Dates: start: 20171010
  20. SENNOSIDES A AND B [Concomitant]
     Active Substance: SENNOSIDES A AND B
     Dosage: UNK
     Dates: start: 20180312
  21. CHOLECALCIFEROL [Concomitant]
     Active Substance: CHOLECALCIFEROL
     Dosage: UNK
     Dates: start: 20140807
  22. MICAFUNGIN [Concomitant]
     Active Substance: MICAFUNGIN SODIUM
     Dosage: UNK
     Dates: start: 20240708
  23. CHLORHEXIDINE GLUCONATE [Concomitant]
     Active Substance: CHLORHEXIDINE GLUCONATE
     Dosage: CLOTH
     Dates: start: 20240708
  24. URSODIOL [Concomitant]
     Active Substance: URSODIOL
     Dosage: UNK
     Dates: start: 20240708, end: 20240728
  25. FAMOTIDINE [Concomitant]
     Active Substance: FAMOTIDINE
     Dosage: UNK
     Dates: start: 20240708, end: 20240729
  26. ONDANSETRON HYDROCHLORIDE [Concomitant]
     Active Substance: ONDANSETRON HYDROCHLORIDE
     Dosage: UNK
     Dates: start: 20240708, end: 20240729
  27. HYDROMORPHONE HYDROCHLORIDE [Concomitant]
     Active Substance: HYDROMORPHONE HYDROCHLORIDE
     Indication: Pain
     Dosage: 10MG/50ML
     Route: 042
     Dates: start: 20240708, end: 20240727
  28. PROPOFOL [Concomitant]
     Active Substance: PROPOFOL
     Dosage: UNK
     Dates: start: 20240708, end: 20240708
  29. LIDOCAINE [Concomitant]
     Active Substance: LIDOCAINE
     Dosage: UNK
     Dates: start: 20240708, end: 20240708
  30. MIDAZOLAM [MIDAZOLAM MALEATE] [Concomitant]
     Dosage: UNK
     Dates: start: 20240708, end: 20240708
  31. SODIUM CHLORIDE [Concomitant]
     Active Substance: SODIUM CHLORIDE
     Dosage: UNK
     Dates: start: 20240708, end: 20240727
  32. DEXTROSE\SODIUM CHLORIDE [Concomitant]
     Active Substance: DEXTROSE\SODIUM CHLORIDE
     Dosage: DEXTROSE 5%-0.45% NACL WITH KCL 20 MEQ/L
     Dates: start: 20240708, end: 20240727
  33. DIPHENHYDRAMINE HYDROCHLORIDE [Concomitant]
     Active Substance: DIPHENHYDRAMINE HYDROCHLORIDE
     Dosage: UNK
     Dates: start: 20240716, end: 20240716
  34. PALONOSETRON HYDROCHLORIDE [Concomitant]
     Active Substance: PALONOSETRON HYDROCHLORIDE
     Dosage: UNK
     Dates: start: 20240709, end: 20240711
  35. ACYCLOVIR [Concomitant]
     Active Substance: ACYCLOVIR
     Dosage: UNK
     Dates: start: 20240708, end: 20240803
  36. F.D LIDOCAINE AND EPINEPHRINE [Concomitant]
     Dosage: LIDOCAINE 1%-EPINEPHRINE 1:100000
     Dates: start: 20240708, end: 20240708
  37. ALBUTEROL SULFATE [Concomitant]
     Active Substance: ALBUTEROL SULFATE
     Dosage: ALBUTEROL HFA 90MCG/ACTUATION INHALER
     Dates: start: 20240709, end: 20240709
  38. PENTAMIDINE ISETHIONATE [Concomitant]
     Active Substance: PENTAMIDINE ISETHIONATE
     Dosage: UNK
     Dates: start: 20240709, end: 20240709
  39. METOCLOPRAMIDE HYDROCHLORIDE [Concomitant]
     Active Substance: METOCLOPRAMIDE HYDROCHLORIDE
     Dosage: UNK
     Dates: start: 20240712, end: 20240712
  40. FLUCONAZOLE [Concomitant]
     Active Substance: FLUCONAZOLE
     Dosage: UNK
     Dates: start: 20240714, end: 20240727
  41. PENICILLIN V POTASSIUM [Concomitant]
     Active Substance: PENICILLIN V POTASSIUM
     Dosage: UNK
     Dates: start: 20240714, end: 20240722
  42. ALBUMIN HUMAN [Concomitant]
     Active Substance: ALBUMIN HUMAN
     Dosage: ALBUMIN 0.5% IN 0.9% NACL
     Dates: start: 20240716, end: 20240716
  43. ACTIVATED CHARCOAL [Concomitant]
     Active Substance: ACTIVATED CHARCOAL
     Dosage: ACTIVATED CHARCOAL/IRON/NACL/ BANDAGE
     Dates: start: 20240721, end: 20240721
  44. AMPICILLIN AND SULBACTAM [Concomitant]
     Active Substance: AMPICILLIN SODIUM\SULBACTAM SODIUM
     Dosage: UNK
     Dates: start: 20240722, end: 20240723
  45. CEFEPIME HYDROCHLORIDE [Concomitant]
     Active Substance: CEFEPIME HYDROCHLORIDE
     Dosage: CEFEPIME IN DEXTROSE
     Dates: start: 20240723, end: 20240727
  46. VANCOMYCIN HYDROCHLORIDE [Concomitant]
     Active Substance: VANCOMYCIN HYDROCHLORIDE
     Dosage: UNK
     Dates: start: 20240724, end: 20240729
  47. DEXTROSE [Concomitant]
     Active Substance: DEXTROSE MONOHYDRATE
     Dosage: UNK
     Dates: start: 20240725, end: 20240801
  48. FILGRASTIM AAFI [Concomitant]
     Dosage: UNK
     Dates: start: 20240725, end: 20240727
  49. ALUMINIUM HYDROXIDE/DIPHENHYDRAMINE/LIDOCAINE/MAGNESIUM HYDROXIDE [Concomitant]
     Dosage: UNK
     Dates: start: 20240725, end: 20240729
  50. KETAMINE HYDROCHLORIDE [Concomitant]
     Active Substance: KETAMINE HYDROCHLORIDE
     Dosage: UNK
     Dates: start: 20240726, end: 20240728
  51. NIACINAMIDE\PYRIDOXINE HYDROCHLORIDE\TYROSINE [Concomitant]
     Active Substance: NIACINAMIDE\PYRIDOXINE HYDROCHLORIDE\TYROSINE
     Dosage: UNK
     Dates: start: 20240726, end: 20240803

REACTIONS (5)
  - Stomatitis [Recovered/Resolved]
  - Tracheal haemorrhage [Recovered/Resolved]
  - Febrile neutropenia [Recovered/Resolved]
  - Acute respiratory distress syndrome [Recovered/Resolved]
  - Rhabdomyolysis [Recovered/Resolved]

NARRATIVE: CASE EVENT DATE: 20240727
